FAERS Safety Report 6380132-1 (Version None)
Quarter: 2009Q3

REPORT INFORMATION
  Report Type: 
  Country: None (occurrence: None)
  Receive Date: 20090929
  Receipt Date: 20090915
  Transmission Date: 20100115
  Serious: Yes (Other)
  Sender: FDA-Public Use
  Company Number: CA-RANBAXY-2009RR-28064

PATIENT
  Age: 58 Year
  Sex: Male

DRUGS (6)
  1. ZIDOVUDINE [Suspect]
     Indication: HIV INFECTION
     Dosage: UNK
  2. LAMIVUDINE [Suspect]
     Indication: HIV INFECTION
     Dosage: UNK
  3. STAVUDINE [Suspect]
     Indication: HIV INFECTION
     Dosage: UNK
  4. DIDANOSINE DELAYED RELEASE [Suspect]
     Indication: HIV INFECTION
     Dosage: UNK
  5. INDINAVIR [Suspect]
     Indication: HIV INFECTION
     Dosage: UNK
  6. RITONAVIR [Suspect]
     Indication: HIV INFECTION
     Dosage: UNK

REACTIONS (7)
  - EYELID PTOSIS [None]
  - FATIGUE [None]
  - LIPODYSTROPHY ACQUIRED [None]
  - MIGRAINE [None]
  - MITOCHONDRIAL TOXICITY [None]
  - MYALGIA [None]
  - OPHTHALMOPLEGIA [None]
